FAERS Safety Report 14431884 (Version 1)
Quarter: 2018Q1

REPORT INFORMATION
  Report Type: Report from Study
  Country: AU (occurrence: AU)
  Receive Date: 20180124
  Receipt Date: 20180124
  Transmission Date: 20180509
  Serious: Yes (Other)
  Sender: FDA-Public Use
  Company Number: AU-REGENERON PHARMACEUTICALS, INC.-2018-11341

PATIENT

DRUGS (1)
  1. EYLEA [Suspect]
     Active Substance: AFLIBERCEPT
     Indication: NEOVASCULAR AGE-RELATED MACULAR DEGENERATION
     Dosage: EYLEA INTO BOTH EYES EVERY 6-8 WEEKS
     Dates: start: 201510

REACTIONS (1)
  - Laser therapy [Recovered/Resolved]

NARRATIVE: CASE EVENT DATE: 201712
